FAERS Safety Report 4590555-9 (Version None)
Quarter: 2005Q1

REPORT INFORMATION
  Report Type: 
  Country: None (occurrence: None)
  Receive Date: 20050224
  Receipt Date: 20040819
  Transmission Date: 20050727
  Serious: Yes (Other)
  Sender: FDA-Public Use
  Company Number: US-GLAXOSMITHKLINE-A0523739A

PATIENT
  Age: 10 Year
  Sex: Female

DRUGS (3)
  1. PAXIL [Suspect]
     Indication: MIGRAINE
     Route: 048
     Dates: start: 20020318, end: 20020501
  2. ELAVIL [Concomitant]
     Indication: MIGRAINE
     Route: 048
     Dates: start: 20010509
  3. PROPRANOLOL [Concomitant]
     Indication: MIGRAINE
     Dosage: 10MG VARIABLE DOSE
     Route: 048
     Dates: start: 20010501

REACTIONS (12)
  - AGGRESSION [None]
  - AGITATION [None]
  - ANXIETY [None]
  - ASTHENIA [None]
  - DRUG INEFFECTIVE [None]
  - HALLUCINATION [None]
  - HALLUCINATION, AUDITORY [None]
  - HALLUCINATION, VISUAL [None]
  - HYPOMANIA [None]
  - NERVOUSNESS [None]
  - SELF MUTILATION [None]
  - TENSION HEADACHE [None]
